FAERS Safety Report 7681659-2 (Version None)
Quarter: 2011Q3

REPORT INFORMATION
  Report Type: 
  Country: None (occurrence: None)
  Receive Date: 20110812
  Receipt Date: 20110728
  Transmission Date: 20111222
  Serious: Yes (Life-Threatening, Hospitalization)
  Sender: FDA-Public Use
  Company Number: PHHO2011US13575

PATIENT
  Sex: Female

DRUGS (5)
  1. LISINOPRIL AND HYDROCHLOROTHIAZIDE [Suspect]
  2. CELEBREX [Suspect]
  3. LANTUS [Suspect]
  4. ASPIRIN [Concomitant]
  5. METFFORMIN HYDROCHLORIDE [Suspect]

REACTIONS (3)
  - RENAL FAILURE ACUTE [None]
  - UROSEPSIS [None]
  - SYNCOPE [None]
